FAERS Safety Report 24408863 (Version 1)
Quarter: 2024Q4

REPORT INFORMATION
  Report Type: Spontaneous
  Country: DE (occurrence: DE)
  Receive Date: 20241007
  Receipt Date: 20241007
  Transmission Date: 20250114
  Serious: Yes (Hospitalization, Other)
  Sender: MERCK
  Company Number: DE-009507513-2408DEU010135

PATIENT
  Sex: Male

DRUGS (3)
  1. KEYTRUDA [Suspect]
     Active Substance: PEMBROLIZUMAB
     Indication: Non-small cell lung cancer metastatic
     Dosage: UNK
     Dates: start: 20240820
  2. METHOTREXATE [Concomitant]
     Active Substance: METHOTREXATE
     Indication: Interstitial lung disease
     Dosage: UNK
     Dates: start: 2022
  3. LEFLUNOMIDE [Concomitant]
     Active Substance: LEFLUNOMIDE
     Indication: Interstitial lung disease
     Dosage: UNK
     Dates: start: 2022

REACTIONS (8)
  - Pneumonitis [Unknown]
  - Atrial fibrillation [Unknown]
  - Malignant pleural effusion [Unknown]
  - Respiratory failure [Unknown]
  - COVID-19 [Recovered/Resolved]
  - Aortic aneurysm [Unknown]
  - Renal cyst [Unknown]
  - General physical health deterioration [Unknown]

NARRATIVE: CASE EVENT DATE: 20240101
